FAERS Safety Report 9299373 (Version 2)
Quarter: 2013Q4

REPORT INFORMATION
  Report Type: Spontaneous
  Country: US (occurrence: US)
  Receive Date: 20130520
  Receipt Date: 20131106
  Transmission Date: 20140711
  Serious: Yes (Hospitalization)
  Sender: FDA-Public Use
  Company Number: US-B.I. PHARMACEUTICALS,INC./RIDGEFIELD-2013-BI-13764BP

PATIENT
  Age: 82 Year
  Sex: Male
  Weight: 103.42 kg

DRUGS (8)
  1. PRADAXA [Suspect]
     Indication: ANTICOAGULANT THERAPY
     Dates: start: 20110620, end: 20110824
  2. PRADAXA [Suspect]
     Indication: ATRIAL FIBRILLATION
  3. CRESTOR [Concomitant]
     Dosage: 20 MG
     Route: 048
  4. PRINIVIL/ZESTRIL [Concomitant]
     Dosage: 5 MG
     Route: 048
  5. COREG [Concomitant]
     Dosage: 6.25 MG
  6. PRENATAL VITAMIN [Concomitant]
     Route: 048
  7. PRAVACHOL [Concomitant]
     Dosage: 40 MG
     Route: 048
  8. CALCIUM CARBONATE WITH VITAMIN D [Concomitant]
     Route: 048

REACTIONS (1)
  - Gastrointestinal haemorrhage [Recovered/Resolved]
